FAERS Safety Report 25186165 (Version 2)
Quarter: 2025Q2

REPORT INFORMATION
  Report Type: Spontaneous
  Country: US (occurrence: US)
  Receive Date: 20250410
  Receipt Date: 20250420
  Transmission Date: 20250717
  Serious: No
  Sender: BAUSCH AND LOMB
  Company Number: US-BAUSCHBL-2025BNL005948

PATIENT
  Age: 55 Year
  Sex: Female

DRUGS (4)
  1. MIEBO [Suspect]
     Active Substance: PERFLUOROHEXYLOCTANE
     Indication: Dry eye
     Route: 047
  2. XIIDRA [Suspect]
     Active Substance: LIFITEGRAST
     Indication: Product used for unknown indication
     Route: 047
  3. HUMAN SERUM, NORMAL [Concomitant]
     Active Substance: HUMAN SERUM, NORMAL
     Indication: Product used for unknown indication
  4. RESTASIS [Concomitant]
     Active Substance: CYCLOSPORINE
     Indication: Product used for unknown indication

REACTIONS (7)
  - Dark circles under eyes [Unknown]
  - Dry eye [Unknown]
  - Drug ineffective [Unknown]
  - Product delivery mechanism issue [Unknown]
  - Product dose omission issue [Unknown]
  - Circumstance or information capable of leading to medication error [Unknown]
  - Product use issue [Unknown]
